FAERS Safety Report 9706217 (Version 2)
Quarter: 2013Q4

REPORT INFORMATION
  Report Type: Spontaneous
  Country: TR (occurrence: TR)
  Receive Date: 20131125
  Receipt Date: 20131125
  Transmission Date: 20140711
  Serious: Yes (Other)
  Sender: FDA-Public Use
  Company Number: TR-AMGEN-TURSP2013034630

PATIENT
  Age: 30 Year
  Sex: Female

DRUGS (4)
  1. ENBREL [Suspect]
     Indication: RHEUMATOID ARTHRITIS
     Dosage: 25 MG, 2X/WEEK
     Route: 058
     Dates: start: 20111021, end: 201212
  2. ENBREL [Suspect]
     Dosage: 50 MG, WEEKLY
     Route: 058
     Dates: start: 20121206, end: 20130425
  3. ENBREL [Suspect]
     Dosage: 50 MG, ONCE IN 15 DAYS
     Route: 058
     Dates: start: 2013, end: 20131103
  4. METHOTREXAT                        /00113801/ [Concomitant]
     Dosage: 10 MG, WEEKLY
     Route: 058
     Dates: start: 2009

REACTIONS (7)
  - Menstruation irregular [Unknown]
  - Uterine leiomyoma [Recovered/Resolved]
  - Haemorrhage [Recovered/Resolved]
  - Aphthous stomatitis [Not Recovered/Not Resolved]
  - Immune system disorder [Not Recovered/Not Resolved]
  - Influenza [Unknown]
  - Upper respiratory tract infection [Not Recovered/Not Resolved]
